FAERS Safety Report 8707799 (Version 2)
Quarter: 2012Q4

REPORT INFORMATION
  Report Type: 
  Country: US (occurrence: US)
  Receive Date: 20120904
  Receipt Date: 20120927
  Transmission Date: 20130627
  Serious: Yes (Hospitalization, Other)
  Sender: FDA-Public Use
  Company Number: US-009507513-1208USA000100

PATIENT
  Sex: Female

DRUGS (4)
  1. REBETOL [Suspect]
     Indication: HEPATITIS C
     Dosage: UNK
     Route: 048
     Dates: start: 20110409
  2. REBETOL [Suspect]
     Dosage: UNK
     Route: 048
     Dates: start: 2009
  3. PEG-INTRON [Suspect]
     Indication: HEPATITIS C
     Dosage: UNK
     Dates: start: 20110411
  4. VICTRELIS [Suspect]
     Indication: HEPATITIS C
     Dosage: UNK
     Route: 048
     Dates: start: 20110510

REACTIONS (19)
  - Hepatic cirrhosis [Unknown]
  - Thyroidectomy [Unknown]
  - Thrombosis [Unknown]
  - Hepatic cirrhosis [Unknown]
  - Transfusion [Unknown]
  - Abasia [Unknown]
  - Hepatitis C [Unknown]
  - Renal disorder [Unknown]
  - Asthenia [Unknown]
  - Bone pain [Unknown]
  - Amnesia [Unknown]
  - Abdominal pain [Unknown]
  - Hypothyroidism [Unknown]
  - Fatigue [Unknown]
  - Blood glucose decreased [Unknown]
  - Eating disorder [Unknown]
  - Ageusia [Unknown]
  - Insomnia [Unknown]
  - Nephropathy [Unknown]
